FAERS Safety Report 6437466-1 (Version None)
Quarter: 2009Q4

REPORT INFORMATION
  Report Type: 
  Country: None (occurrence: None)
  Receive Date: 20091112
  Receipt Date: 20091104
  Transmission Date: 20100525
  Serious: Yes (Hospitalization)
  Sender: FDA-Public Use
  Company Number: PHHO2009DK13307

PATIENT
  Sex: Male
  Weight: 90 kg

DRUGS (7)
  1. BLINDED ALISKIREN ALI+TAB+CF [Suspect]
     Indication: CARDIAC FAILURE
     Dosage: CODE NOT BROKEN
     Route: 048
     Dates: start: 20090818, end: 20091027
  2. ENALAPRIL MALEATE [Suspect]
     Indication: CARDIAC FAILURE
     Dosage: CODE NOT BROKEN
     Route: 048
     Dates: start: 20090818, end: 20091027
  3. BLINDED NO TREATMENT RECEIVED NOMED [Suspect]
     Indication: CARDIAC FAILURE
     Dosage: CODE NOT BROKEN
     Route: 048
     Dates: start: 20090818, end: 20091027
  4. ALISKIREN [Suspect]
     Indication: CARDIAC FAILURE
     Dosage: CODE NOT BROKEN
     Route: 048
     Dates: start: 20090818, end: 20091027
  5. ENALAPRIL MALEATE [Suspect]
     Indication: CARDIAC FAILURE
     Dosage: CODE NOT BROKEN
     Route: 048
     Dates: start: 20090818, end: 20091027
  6. SELOZOK [Concomitant]
     Indication: CARDIAC FAILURE CHRONIC
  7. ELTROXIN [Concomitant]
     Indication: HYPOMETABOLISM

REACTIONS (5)
  - CARDIOVERSION [None]
  - DISEASE PROGRESSION [None]
  - ELECTROCARDIOGRAM QRS COMPLEX PROLONGED [None]
  - HEART RATE INCREASED [None]
  - TACHYCARDIA [None]
